FAERS Safety Report 8789840 (Version 2)
Quarter: 2012Q4

REPORT INFORMATION
  Report Type: 
  Country: FR (occurrence: FR)
  Receive Date: 20120917
  Receipt Date: 20120917
  Transmission Date: 20130627
  Serious: Yes (Hospitalization)
  Sender: FDA-Public Use
  Company Number: FR-TEVA-355807ISR

PATIENT
  Age: 37 Year
  Sex: Male

DRUGS (3)
  1. TRAMADOL [Suspect]
     Indication: PARONYCHIA
     Dosage: 1 unique intake
     Route: 048
     Dates: start: 20120822, end: 20120822
  2. METFORMIN [Concomitant]
  3. LOCOREGIONAL ANESTHESIA [Concomitant]

REACTIONS (9)
  - Nightmare [Recovered/Resolved]
  - Sensory disturbance [Recovered/Resolved]
  - Dizziness [Recovered/Resolved]
  - Hyperhidrosis [Recovered/Resolved]
  - Abdominal pain [Recovered/Resolved]
  - Nausea [Recovered/Resolved]
  - Palpitations [Recovered/Resolved]
  - Chest pain [Recovered/Resolved]
  - Bundle branch block [None]
